FAERS Safety Report 8173043-2 (Version None)
Quarter: 2012Q1

REPORT INFORMATION
  Report Type: 
  Country: None (occurrence: None)
  Receive Date: 20120223
  Receipt Date: 20120208
  Transmission Date: 20120608
  Serious: Yes (Hospitalization, Other)
  Sender: FDA-Public Use
  Company Number: 2012P1004423

PATIENT
  Age: 27 Year
  Sex: Male
  Weight: 88.905 kg

DRUGS (17)
  1. CARBAMAZEPINE [Suspect]
     Indication: EPILEPSY
     Dosage: 200 MG; Q6H;PO
     Route: 048
     Dates: start: 20120208
  2. TEGRETOL [Suspect]
     Indication: EPILEPSY
  3. LORATADINE [Concomitant]
  4. TEGRETOL [Suspect]
     Indication: EPILEPSY
  5. CENTRUM SENIOR [Concomitant]
  6. ALBUTEROL [Concomitant]
  7. CARBAMAZEPINE [Suspect]
     Indication: EPILEPSY
     Dosage: 400 MG;BID;
     Dates: start: 20120108, end: 20120208
  8. CARBAMAZEPINE [Suspect]
     Indication: EPILEPSY
  9. FENOFIBRATE [Concomitant]
  10. LEVOXYL [Concomitant]
  11. TEGRETOL [Suspect]
     Indication: EPILEPSY
  12. CRESTOR [Concomitant]
  13. VITAMIN E [Concomitant]
  14. CARBAMAZEPINE [Suspect]
     Indication: EPILEPSY
  15. DEPAKENE [Suspect]
     Indication: EPILEPSY
     Dates: end: 20090901
  16. CALCIUM CHEWS 500 MG PLUS VITAMIN D AND VITAMIN K [Concomitant]
  17. LEVOCARNITINE [Concomitant]

REACTIONS (14)
  - TONGUE BITING [None]
  - POISONING [None]
  - WRONG TECHNIQUE IN DRUG USAGE PROCESS [None]
  - CHOKING [None]
  - GRAND MAL CONVULSION [None]
  - ACNE [None]
  - DRUG EFFECT INCREASED [None]
  - DRUG EFFECT DECREASED [None]
  - ANTICONVULSANT DRUG LEVEL ABNORMAL [None]
  - ORAL HERPES [None]
  - CYANOSIS [None]
  - DYSPHAGIA [None]
  - APNOEA [None]
  - HAEMORRHAGE [None]
